FAERS Safety Report 8991250 (Version 1)
Quarter: 2012Q4

REPORT INFORMATION
  Report Type: Report from Study
  Country: CA (occurrence: CA)
  Receive Date: 20121231
  Receipt Date: 20121231
  Transmission Date: 20130627
  Serious: Yes (Hospitalization, Other)
  Sender: FDA-Public Use
  Company Number: CA-ROCHE-1167364

PATIENT
  Sex: Female

DRUGS (1)
  1. OMALIZUMAB [Suspect]
     Indication: ASTHMA
     Route: 058
     Dates: start: 20080728, end: 20081230

REACTIONS (6)
  - Productive cough [Recovered/Resolved]
  - Asthma [Unknown]
  - Pruritus [Recovered/Resolved]
  - Cough [Unknown]
  - Erythema [Unknown]
  - Drug ineffective [Unknown]
